FAERS Safety Report 9466323 (Version 5)
Quarter: 2014Q1

REPORT INFORMATION
  Report Type: Report from Study
  Country: US (occurrence: US)
  Receive Date: 20130820
  Receipt Date: 20140307
  Transmission Date: 20141002
  Serious: Yes (Other)
  Sender: FDA-Public Use
  Company Number: US-ALEXION PHARMACEUTICALS INC.-A201301939

PATIENT
  Age: 16 Year
  Sex: Male
  Weight: 62 kg

DRUGS (2)
  1. SOLIRIS [Suspect]
     Indication: PAROXYSMAL NOCTURNAL HAEMOGLOBINURIA
     Dosage: 600 MG, QW X 4
     Route: 042
     Dates: start: 20130328
  2. SOLIRIS [Suspect]
     Indication: OFF LABEL USE
     Dosage: 900 MG, Q2W
     Route: 042
     Dates: start: 20130425

REACTIONS (10)
  - Cholecystitis acute [Unknown]
  - Biopsy bone marrow abnormal [Unknown]
  - Bone marrow transplant [Unknown]
  - Adverse event [Unknown]
  - Blood bilirubin increased [Unknown]
  - Off label use [Unknown]
  - Hypotension [Unknown]
  - Anaemia [Unknown]
  - Fatigue [Unknown]
  - Haemolysis [Not Recovered/Not Resolved]
